FAERS Safety Report 5783133-7 (Version None)
Quarter: 2008Q2

REPORT INFORMATION
  Report Type: 
  Country: None (occurrence: None)
  Receive Date: 20080619
  Receipt Date: 20080619
  Transmission Date: 20081010
  Serious: Yes (Hospitalization)
  Sender: FDA-Public Use
  Company Number: None

PATIENT
  Sex: Male
  Weight: 37.1 kg

DRUGS (2)
  1. CYTARABINE [Suspect]
     Dosage: 28400 MG
  2. L-ASPARAGINASE [Suspect]
     Dosage: 14200 UNIT

REACTIONS (3)
  - ALPHA HAEMOLYTIC STREPTOCOCCAL INFECTION [None]
  - NEUTROPENIA [None]
  - SEPTIC SHOCK [None]
